FAERS Safety Report 4544542-7 (Version None)
Quarter: 2005Q1

REPORT INFORMATION
  Report Type: 
  Country: None (occurrence: None)
  Receive Date: 20050104
  Receipt Date: 20041220
  Transmission Date: 20050727
  Serious: No
  Sender: FDA-Public Use
  Company Number: 9534

PATIENT
  Age: 69 Year
  Sex: Female

DRUGS (7)
  1. AMIODARONE [Suspect]
     Indication: ATRIAL FIBRILLATION
     Dosage: 200 MG FREQ
     Dates: start: 20041008
  2. SIMVASTATIN [Concomitant]
  3. PERINDOPRIL [Concomitant]
  4. DIGOXIN [Concomitant]
  5. WARFARIN [Concomitant]
  6. AMILORIDE [Concomitant]
  7. FRUSEMIDE [Concomitant]

REACTIONS (1)
  - HYPOTHYROIDISM [None]
